FAERS Safety Report 24976923 (Version 1)
Quarter: 2025Q1

REPORT INFORMATION
  Report Type: Spontaneous
  Country: US (occurrence: US)
  Receive Date: 20250217
  Receipt Date: 20250217
  Transmission Date: 20250409
  Serious: Yes (Other)
  Sender: PFIZER
  Company Number: US-PFIZER INC-PV202500017852

PATIENT
  Age: 59 Year
  Sex: Female

DRUGS (2)
  1. LORBRENA [Suspect]
     Active Substance: LORLATINIB
     Dates: end: 2023
  2. LORBRENA [Suspect]
     Active Substance: LORLATINIB
     Dates: start: 202304, end: 2024

REACTIONS (10)
  - Hallucination [Unknown]
  - Blood cholesterol increased [Unknown]
  - Blood triglycerides increased [Unknown]
  - Weight increased [Unknown]
  - Mood swings [Unknown]
  - Nightmare [Unknown]
  - Screaming [Unknown]
  - Skin disorder [Unknown]
  - Arthralgia [Unknown]
  - Alopecia [Unknown]
